FAERS Safety Report 23068721 (Version 2)
Quarter: 2023Q4

REPORT INFORMATION
  Report Type: Spontaneous
  Country: US (occurrence: US)
  Receive Date: 20231016
  Receipt Date: 20231018
  Transmission Date: 20240110
  Serious: Yes (Other)
  Sender: FDA-Public Use
  Company Number: US-PFIZER INC-PV202300165845

PATIENT
  Age: 40 Year
  Sex: Male

DRUGS (1)
  1. EPINEPHRINE [Suspect]
     Active Substance: EPINEPHRINE
     Indication: Varices oesophageal
     Dosage: UNK

REACTIONS (2)
  - Arteriospasm coronary [Recovered/Resolved]
  - Off label use [Unknown]
